FAERS Safety Report 16388769 (Version 1)
Quarter: 2019Q3

REPORT INFORMATION
  Report Type: Spontaneous
  Country: US (occurrence: US)
  Receive Date: 20190603
  Receipt Date: 20190603
  Transmission Date: 20191004
  Serious: Yes (Death, Other)
  Sender: FDA-Public Use
  Company Number: None

PATIENT
  Age: 27 Year
  Sex: Female
  Weight: 61.23 kg

DRUGS (3)
  1. DAILY MULTIVITAMIN [Concomitant]
     Active Substance: VITAMINS
  2. SKYLA [Suspect]
     Active Substance: LEVONORGESTREL
  3. MIRENA [Concomitant]
     Active Substance: LEVONORGESTREL

REACTIONS (4)
  - Pregnancy with contraceptive device [None]
  - Abortion spontaneous [None]
  - Menstrual disorder [None]
  - Mental disorder [None]

NARRATIVE: CASE EVENT DATE: 20181031
